FAERS Safety Report 5375147-6 (Version None)
Quarter: 2007Q2

REPORT INFORMATION
  Report Type: 
  Country: None (occurrence: None)
  Receive Date: 20070629
  Receipt Date: 20060621
  Transmission Date: 20071010
  Serious: No
  Sender: FDA-Public Use
  Company Number: US-ASTRAZENECA-2006UW13199

PATIENT
  Age: 80 Year
  Sex: Male
  Weight: 95.3 kg

DRUGS (9)
  1. ZOLADEX [Suspect]
     Indication: PROSTATE CANCER
     Route: 058
     Dates: start: 20060301
  2. GEMFIBORIZORAL [Concomitant]
  3. HYDROCORTISONE [Concomitant]
  4. CRESTOR [Concomitant]
     Route: 048
  5. CASODEX [Concomitant]
     Route: 048
  6. METOPROLOL SUCCINATE [Concomitant]
  7. ASPIRIN [Concomitant]
  8. FUROSEMIDE [Concomitant]
  9. NIACIN [Concomitant]

REACTIONS (2)
  - HEART RATE INCREASED [None]
  - HOT FLUSH [None]
